FAERS Safety Report 14647564 (Version 2)
Quarter: 2018Q1

REPORT INFORMATION
  Report Type: Spontaneous
  Country: US (occurrence: US)
  Receive Date: 20180316
  Receipt Date: 20180328
  Transmission Date: 20180509
  Serious: Yes (Other)
  Sender: FDA-Public Use
  Company Number: US-LUPIN (EUROPE) LIMITED-2018-01741

PATIENT
  Age: 75 Year
  Sex: Female
  Weight: 78.46 kg

DRUGS (1)
  1. LISINOPRIL TABLETS USP, 40MG [Suspect]
     Active Substance: LISINOPRIL
     Indication: HYPERTENSION
     Dosage: 40 MG, BID
     Route: 048
     Dates: start: 20170702, end: 20180216

REACTIONS (5)
  - Renal failure [Recovered/Resolved]
  - Malaise [Recovering/Resolving]
  - Decreased appetite [Recovering/Resolving]
  - Weight decreased [Recovered/Resolved]
  - Blood creatinine increased [Recovered/Resolved]

NARRATIVE: CASE EVENT DATE: 20170702
